FAERS Safety Report 5848078-2 (Version None)
Quarter: 2008Q3

REPORT INFORMATION
  Report Type: 
  Country: None (occurrence: None)
  Receive Date: 20080814
  Receipt Date: 20080814
  Transmission Date: 20090109
  Serious: Yes (Other)
  Sender: FDA-Public Use
  Company Number: None

PATIENT
  Sex: Female

DRUGS (7)
  1. REVLIMID [Suspect]
     Dosage: 25MG DAILY 21D/28D ORAL, 6 MONTHS
     Route: 048
  2. WARFARIN SODIUM [Concomitant]
  3. ESTRADIOL INJ [Concomitant]
  4. MEDROXYPROGESTERONE [Concomitant]
  5. NEUPOGEN [Concomitant]
  6. CLINDAMYCIN [Concomitant]
  7. MORPHINE [Concomitant]

REACTIONS (1)
  - NEUTROPENIA [None]
